FAERS Safety Report 8989761 (Version 1)
Quarter: 2012Q4

REPORT INFORMATION
  Report Type: 
  Country: US (occurrence: US)
  Receive Date: 20121228
  Receipt Date: 20121228
  Transmission Date: 20130627
  Serious: No
  Sender: FDA-Public Use
  Company Number: US-ASTRAZENECA-2012SE95237

PATIENT
  Age: 75 Year
  Sex: Female
  Weight: 74.8 kg

DRUGS (3)
  1. NEXIUM [Suspect]
     Indication: HELICOBACTER INFECTION
     Route: 048
  2. METOPROLOL [Suspect]
     Route: 048
  3. LEVOTHYROXINE [Concomitant]

REACTIONS (4)
  - Abdominal pain [Unknown]
  - Abdominal discomfort [Unknown]
  - Somnolence [Unknown]
  - Flatulence [Unknown]
